FAERS Safety Report 13108496 (Version 1)
Quarter: 2017Q1

REPORT INFORMATION
  Report Type: Spontaneous
  Country: US (occurrence: US)
  Receive Date: 20170111
  Receipt Date: 20170111
  Transmission Date: 20170428
  Serious: Yes (Hospitalization, Other)
  Sender: FDA-Public Use
  Company Number: None

PATIENT
  Age: 53 Year
  Sex: Female
  Weight: 51.75 kg

DRUGS (7)
  1. TRAMADOL. [Concomitant]
     Active Substance: TRAMADOL
  2. ADVIL [Concomitant]
     Active Substance: IBUPROFEN
  3. TYLENOL [Concomitant]
     Active Substance: ACETAMINOPHEN
  4. GABAPENTIN 300 MG CAPSULE [Suspect]
     Active Substance: GABAPENTIN
     Indication: NEURALGIA
     Dosage: ?          QUANTITY:3 CAPSULE(S);?
     Route: 048
     Dates: start: 20110309, end: 20160821
  5. XANAX [Concomitant]
     Active Substance: ALPRAZOLAM
  6. ZOLOFT [Concomitant]
     Active Substance: SERTRALINE HYDROCHLORIDE
  7. BACLOFEN. [Concomitant]
     Active Substance: BACLOFEN

REACTIONS (13)
  - Hot flush [None]
  - Tremor [None]
  - Feeling cold [None]
  - Abnormal behaviour [None]
  - Hyperhidrosis [None]
  - Panic reaction [None]
  - Disturbance in attention [None]
  - Marital problem [None]
  - Drug ineffective [None]
  - Crying [None]
  - Anger [None]
  - Psychotic disorder [None]
  - Inappropriate schedule of drug administration [None]

NARRATIVE: CASE EVENT DATE: 20160816
